FAERS Safety Report 9772099 (Version 3)
Quarter: 2013Q4

REPORT INFORMATION
  Report Type: Report from Study
  Country: US (occurrence: US)
  Receive Date: 20131219
  Receipt Date: 20131227
  Transmission Date: 20140711
  Serious: Yes (Hospitalization)
  Sender: FDA-Public Use
  Company Number: US-CELGENEUS-163-C4047-13111951

PATIENT
  Age: 52 Year
  Sex: Male
  Weight: 88.12 kg

DRUGS (29)
  1. CC-4047 [Suspect]
     Indication: PLASMA CELL MYELOMA
     Dosage: 4 MILLIGRAM
     Route: 048
     Dates: start: 20121029, end: 20121111
  2. CC-4047 [Suspect]
     Dosage: 3 MILLIGRAM
     Route: 048
     Dates: start: 20131015, end: 20131028
  3. CC-4047 [Suspect]
     Route: 048
     Dates: end: 20131205
  4. BORTEZOMIB [Suspect]
     Indication: PLASMA CELL MYELOMA
     Route: 041
     Dates: start: 20121029, end: 20121108
  5. BORTEZOMIB [Suspect]
     Route: 041
     Dates: start: 20131015, end: 20131022
  6. BORTEZOMIB [Suspect]
     Route: 041
     Dates: end: 20131205
  7. DEXAMETHASONE [Suspect]
     Indication: PLASMA CELL MYELOMA
     Route: 048
     Dates: start: 20121029, end: 20121109
  8. DEXAMETHASONE [Suspect]
     Route: 048
     Dates: start: 20131015, end: 20131023
  9. DEXAMETHASONE [Suspect]
     Route: 048
     Dates: end: 20131205
  10. ACYCLOVIR [Concomitant]
     Indication: ANTIVIRAL PROPHYLAXIS
     Dosage: 1200 MILLIGRAM
     Route: 048
     Dates: start: 200807
  11. FLUOXETINE [Concomitant]
     Indication: DEPRESSION
     Dosage: 40 MILLIGRAM
     Route: 048
     Dates: start: 200710
  12. OXYCODONE [Concomitant]
     Indication: NEUROPATHY PERIPHERAL
     Dosage: 20 MILLIGRAM
     Route: 048
     Dates: start: 200807
  13. TRAZODONE [Concomitant]
     Indication: INSOMNIA
     Dosage: 25 MILLIGRAM
     Route: 048
     Dates: start: 2008
  14. TURMERIC [Concomitant]
     Indication: SUPPLEMENTATION THERAPY
     Route: 048
  15. CHOLECALCIFEROL [Concomitant]
     Indication: SUPPLEMENTATION THERAPY
     Route: 048
     Dates: start: 2008
  16. CINNAMON BARK [Concomitant]
     Indication: SUPPLEMENTATION THERAPY
     Dosage: 500 MILLIGRAM
     Route: 048
     Dates: start: 201203
  17. MULTIVITAMIN [Concomitant]
     Indication: SUPPLEMENTATION THERAPY
     Dosage: 1 TABLET
     Route: 048
     Dates: start: 2002
  18. ONDANSETRON HCL [Concomitant]
     Indication: PROPHYLAXIS OF NAUSEA AND VOMITING
     Dosage: 4-8MG
     Route: 048
     Dates: start: 20121029
  19. ASPIRIN [Concomitant]
     Indication: THROMBOSIS PROPHYLAXIS
     Dosage: 81 MILLIGRAM
     Route: 048
     Dates: start: 20121029
  20. DEXTROMETHARPHAN-GUAIFENESIN [Concomitant]
     Indication: COUGH
     Dosage: 20 MILLILITER
     Route: 048
     Dates: start: 20121226
  21. POTASSIUM + SODIUM PHOSPHATES [Concomitant]
     Indication: HYPOPHOSPHATAEMIA
     Dosage: 1500 MILLIGRAM
     Route: 048
     Dates: start: 20130220
  22. EXTRA STRENGTH TYLENOL [Concomitant]
     Indication: UPPER RESPIRATORY TRACT INFECTION
     Route: 048
     Dates: start: 20130504
  23. GABAPENTIN [Concomitant]
     Indication: NEUROPATHY PERIPHERAL
     Dosage: 900 MILLIGRAM
     Route: 048
     Dates: start: 20130607
  24. NEUTROPHOS [Concomitant]
     Indication: HYPOPHOSPHATAEMIA
     Route: 048
     Dates: start: 20130709
  25. ANDROGEL [Concomitant]
     Indication: BLOOD TESTOSTERONE DECREASED
     Dosage: 50MG/5GM
     Route: 062
     Dates: start: 20130910
  26. NEUPOGEN [Concomitant]
     Indication: NEUTROPENIA
     Route: 058
     Dates: start: 20131015, end: 20131015
  27. LUNESTA [Concomitant]
     Indication: SLEEP DISORDER
     Dosage: 2 MILLIGRAM
     Route: 048
     Dates: start: 20130508
  28. AZITHROMYCIN [Concomitant]
     Indication: UPPER RESPIRATORY TRACT INFECTION
     Dosage: 500 MILLIGRAM
     Route: 048
     Dates: start: 20131029, end: 20131102
  29. AZITHROMYCIN [Concomitant]
     Dosage: 500 MILLIGRAM
     Route: 048
     Dates: start: 20131115, end: 20131119

REACTIONS (2)
  - Syncope [Recovered/Resolved]
  - Syncope [Recovered/Resolved]
